FAERS Safety Report 7231958-3 (Version None)
Quarter: 2011Q1

REPORT INFORMATION
  Report Type: 
  Country: None (occurrence: None)
  Receive Date: 20110118
  Receipt Date: 20110110
  Transmission Date: 20110831
  Serious: Yes (Other)
  Sender: FDA-Public Use
  Company Number: DE-GENENTECH-312323

PATIENT

DRUGS (1)
  1. METALYSE [Suspect]
     Indication: PULMONARY EMBOLISM

REACTIONS (1)
  - PULMONARY EMBOLISM [None]
